FAERS Safety Report 25949987 (Version 1)
Quarter: 2025Q4

REPORT INFORMATION
  Report Type: Spontaneous
  Country: CA (occurrence: CA)
  Receive Date: 20251022
  Receipt Date: 20251022
  Transmission Date: 20260117
  Serious: Yes (Other)
  Sender: BOEHRINGER INGELHEIM
  Company Number: CA-BoehringerIngelheim-2025-BI-102827

PATIENT
  Age: 84 Year
  Sex: Female
  Weight: 92.9 kg

DRUGS (2)
  1. PRADAXA [Suspect]
     Active Substance: DABIGATRAN ETEXILATE MESYLATE
     Indication: Thrombosis prophylaxis
  2. PRADAXA [Suspect]
     Active Substance: DABIGATRAN ETEXILATE MESYLATE
     Indication: Pulmonary embolism

REACTIONS (14)
  - Nausea [Recovered/Resolved]
  - Pollakiuria [Recovered/Resolved]
  - Chromaturia [Recovered/Resolved]
  - Thirst [Recovered/Resolved]
  - Chronic kidney disease [Recovered/Resolved]
  - Migraine with aura [Recovered/Resolved]
  - Fatigue [Recovered/Resolved]
  - Anxiety [Recovered/Resolved]
  - Poor quality sleep [Recovered/Resolved]
  - Confusional state [Recovered/Resolved]
  - Disorientation [Recovered/Resolved]
  - Illogical thinking [Recovered/Resolved]
  - Thinking abnormal [Recovered/Resolved]
  - Muscular weakness [Recovered/Resolved]
